FAERS Safety Report 11443664 (Version 2)
Quarter: 2015Q4

REPORT INFORMATION
  Report Type: Spontaneous
  Country: US (occurrence: US)
  Receive Date: 20150901
  Receipt Date: 20151008
  Transmission Date: 20160304
  Serious: No
  Sender: FDA-Public Use
  Company Number: US-GLAXOSMITHKLINE-US2015123981

PATIENT
  Sex: Female

DRUGS (3)
  1. PROAIR HFA [Concomitant]
     Active Substance: ALBUTEROL SULFATE
  2. VENTOLIN [Suspect]
     Active Substance: ALBUTEROL SULFATE
     Indication: CHRONIC OBSTRUCTIVE PULMONARY DISEASE
     Dosage: 2 PUFF(S), PRN
     Route: 055
     Dates: start: 2008
  3. OXYGEN. [Concomitant]
     Active Substance: OXYGEN
     Route: 055

REACTIONS (2)
  - Therapeutic response decreased [Unknown]
  - Device use error [Unknown]

NARRATIVE: CASE EVENT DATE: 2015
